FAERS Safety Report 19084643 (Version 1)
Quarter: 2021Q2

REPORT INFORMATION
  Report Type: Spontaneous
  Country: None (occurrence: US)
  Receive Date: 20210401
  Receipt Date: 20210401
  Transmission Date: 20210717
  Serious: No
  Sender: FDA-Public Use
  Company Number: US-IBSA PHARMA-2020-IBS-00795

PATIENT
  Age: 82 Year

DRUGS (4)
  1. DICLOFENAC [Suspect]
     Active Substance: DICLOFENAC
  2. ELIQUIS [Concomitant]
     Active Substance: APIXABAN
  3. ASPIRINA [Concomitant]
     Active Substance: ASPIRIN
     Dosage: UNK UNK, OD
  4. VIOXX [Suspect]
     Active Substance: ROFECOXIB

REACTIONS (2)
  - No adverse event [Unknown]
  - Drug ineffective [Unknown]
